FAERS Safety Report 8306793-5 (Version None)
Quarter: 2012Q1

REPORT INFORMATION
  Report Type: 
  Country: None (occurrence: None)
  Receive Date: 20120327
  Receipt Date: 20090728
  Transmission Date: 20120608
  Serious: Yes (Death)
  Sender: FDA-Public Use
  Company Number: PHEH2007US16329

PATIENT
  Age: 72 Year
  Sex: Male

DRUGS (5)
  1. PLAVIX [Concomitant]
  2. DIGOXIN [Concomitant]
  3. GLEEVEC [Suspect]
     Indication: NEOPLASM MALIGNANT
     Dosage: 1000 MG, BID, ORAL
     Route: 048
     Dates: start: 20050501, end: 20071001
  4. CELEXA [Concomitant]
  5. DURAGESIC-100 [Concomitant]

REACTIONS (4)
  - HEPATIC FAILURE [None]
  - NEOPLASM MALIGNANT [None]
  - OVERDOSE [None]
  - NEOPLASM PROGRESSION [None]
